FAERS Safety Report 5906331-8 (Version None)
Quarter: 2008Q4

REPORT INFORMATION
  Report Type: 
  Country: None (occurrence: None)
  Receive Date: 20081002
  Receipt Date: 20080520
  Transmission Date: 20090506
  Serious: No
  Sender: FDA-Public Use
  Company Number: US-ABBOTT-08P-163-0455686-00

PATIENT
  Age: 69 Year
  Sex: Female

DRUGS (4)
  1. TRICOR [Suspect]
     Indication: BLOOD CHOLESTEROL INCREASED
     Dosage: INCREASED DOSE
  2. TRICOR [Suspect]
     Indication: BLOOD TRIGLYCERIDES INCREASED
  3. TRICOR [Suspect]
     Indication: BLOOD CHOLESTEROL INCREASED
     Dosage: NOT REPORTED
  4. TRICOR [Suspect]
     Indication: BLOOD TRIGLYCERIDES INCREASED

REACTIONS (4)
  - BRONCHIAL SECRETION RETENTION [None]
  - CHEST DISCOMFORT [None]
  - COUGH [None]
  - HEADACHE [None]
